APPROVED DRUG PRODUCT: DESOWEN
Active Ingredient: DESONIDE
Strength: 0.05%
Dosage Form/Route: OINTMENT;TOPICAL
Application: A071425 | Product #001
Applicant: GALDERMA LABORATORIES LP
Approved: Jun 15, 1988 | RLD: No | RS: No | Type: DISCN